FAERS Safety Report 4913577-4 (Version None)
Quarter: 2006Q1

REPORT INFORMATION
  Report Type: 
  Country: None (occurrence: None)
  Receive Date: 20060216
  Receipt Date: 20060206
  Transmission Date: 20060701
  Serious: Yes (Other)
  Sender: FDA-Public Use
  Company Number: PHEH2006US01819

PATIENT
  Age: 50 Year
  Sex: Male

DRUGS (1)
  1. MIACALCIN [Suspect]
     Indication: STRESS FRACTURE
     Dosage: 200 IU, QD
     Dates: start: 20040101

REACTIONS (2)
  - PAIN [None]
  - STRESS FRACTURE [None]
